FAERS Safety Report 6729688-7 (Version None)
Quarter: 2010Q2

REPORT INFORMATION
  Report Type: 
  Country: None (occurrence: None)
  Receive Date: 20100518
  Receipt Date: 20100513
  Transmission Date: 20101027
  Serious: Yes (Life-Threatening)
  Sender: FDA-Public Use
  Company Number: PHHY2010US31309

PATIENT
  Sex: Male

DRUGS (1)
  1. ELIDEL [Suspect]
     Indication: DERMATITIS
     Route: 061

REACTIONS (3)
  - APPARENT DEATH [None]
  - DERMATITIS [None]
  - FEELING ABNORMAL [None]
